FAERS Safety Report 4268120-2 (Version None)
Quarter: 2004Q1

REPORT INFORMATION
  Report Type: 
  Country: None (occurrence: None)
  Receive Date: 20040109
  Receipt Date: 20030303
  Transmission Date: 20041129
  Serious: Yes (Other)
  Sender: FDA-Public Use
  Company Number: BE-ROCHE-333397

PATIENT
  Age: 39 Year
  Sex: Male
  Weight: 76.5 kg

DRUGS (2)
  1. PEG-INTERFERON ALFA 2A (RO 25-8310) [Suspect]
     Route: 058
     Dates: start: 20030128, end: 20030225
  2. RIBAVIRIN [Suspect]
     Route: 048
     Dates: start: 20030128, end: 20030227

REACTIONS (1)
  - THROMBOPHLEBITIS SUPERFICIAL [None]
